FAERS Safety Report 12351112 (Version 3)
Quarter: 2016Q3

REPORT INFORMATION
  Report Type: Report from Study
  Country: US (occurrence: US)
  Receive Date: 20160510
  Receipt Date: 20160808
  Transmission Date: 20161109
  Serious: Yes (Other)
  Sender: FDA-Public Use
  Company Number: US-SA-2016SA071236

PATIENT
  Age: 15 Year
  Sex: Male
  Weight: 60 kg

DRUGS (3)
  1. CAPRELSA [Suspect]
     Active Substance: VANDETANIB
     Indication: THYROID CANCER
     Route: 048
     Dates: start: 20160208, end: 20160327
  2. CAPRELSA [Suspect]
     Active Substance: VANDETANIB
     Indication: THYROID CANCER
     Route: 048
     Dates: start: 20160328
  3. CAPRELSA [Suspect]
     Active Substance: VANDETANIB
     Indication: THYROID CANCER
     Route: 048
     Dates: start: 20151222, end: 20160129

REACTIONS (8)
  - Pruritus [Recovered/Resolved]
  - Insomnia [Recovered/Resolved]
  - Electrocardiogram QT prolonged [Recovered/Resolved]
  - Diarrhoea [Recovered/Resolved]
  - Adverse drug reaction [Not Recovered/Not Resolved]
  - Syncope [Unknown]
  - Full blood count decreased [Unknown]
  - Acne [Not Recovered/Not Resolved]

NARRATIVE: CASE EVENT DATE: 20160129
